FAERS Safety Report 5569820-4 (Version None)
Quarter: 2007Q4

REPORT INFORMATION
  Report Type: 
  Country: None (occurrence: None)
  Receive Date: 20071220
  Receipt Date: 20070216
  Transmission Date: 20080405
  Serious: No
  Sender: FDA-Public Use
  Company Number: US-ABBOTT-07P-163-0359716-00

PATIENT
  Sex: Female
  Weight: 49.94 kg

DRUGS (2)
  1. OMNICEF [Suspect]
     Indication: NASOPHARYNGITIS
     Route: 048
     Dates: start: 20070208, end: 20070215
  2. OMNICEF [Suspect]
     Indication: PHARYNGOLARYNGEAL PAIN

REACTIONS (1)
  - DIARRHOEA [None]
